FAERS Safety Report 22399381 (Version 3)
Quarter: 2025Q4

REPORT INFORMATION
  Report Type: Report from Study
  Country: CA (occurrence: CA)
  Receive Date: 20230602
  Receipt Date: 20251029
  Transmission Date: 20260118
  Serious: No
  Sender: TAKEDA
  Company Number: CA-TAKEDA-2023TUS053629

PATIENT
  Age: 42 Year
  Sex: Male

DRUGS (3)
  1. VEDOLIZUMAB [Suspect]
     Active Substance: VEDOLIZUMAB
     Indication: Crohn^s disease
     Dosage: 300 MILLIGRAM
  2. VEDOLIZUMAB [Suspect]
     Active Substance: VEDOLIZUMAB
     Dosage: 300 MILLIGRAM
  3. PREDNISONE [Concomitant]
     Active Substance: PREDNISONE
     Dosage: UNK

REACTIONS (2)
  - Diarrhoea [Unknown]
  - Pilonidal disease [Unknown]

NARRATIVE: CASE EVENT DATE: 20230518
